FAERS Safety Report 16969371 (Version 1)
Quarter: 2019Q4

REPORT INFORMATION
  Report Type: Spontaneous
  Country: US (occurrence: US)
  Receive Date: 20191029
  Receipt Date: 20191029
  Transmission Date: 20200122
  Serious: Yes (Hospitalization)
  Sender: FDA-Public Use
  Company Number: US-MYLANLABS-2019M1101285

PATIENT
  Age: 46 Year
  Sex: Female

DRUGS (1)
  1. NAFCILLIN [Suspect]
     Active Substance: NAFCILLIN SODIUM
     Indication: ENDOCARDITIS
     Dosage: ROUTE: VAGINAL EXPOSURE VIA PARTNER^S SEMEN
     Route: 067

REACTIONS (2)
  - Exposure via body fluid [Recovered/Resolved]
  - Anaphylactic reaction [Recovered/Resolved]
